FAERS Safety Report 8611046 (Version 3)
Quarter: 2013Q1

REPORT INFORMATION
  Report Type: Spontaneous
  Country: US (occurrence: US)
  Receive Date: 20120612
  Receipt Date: 20130228
  Transmission Date: 20140127
  Serious: Yes (Other)
  Sender: FDA-Public Use
  Company Number: US-ELI_LILLY_AND_COMPANY-US201112000660

PATIENT
  Age: 78 Year
  Sex: Female
  Weight: 76.2 kg

DRUGS (14)
  1. FORTEO [Suspect]
     Indication: OSTEOPOROSIS
     Dosage: 20 UG, QD
     Dates: start: 20110915
  2. FORTEO [Suspect]
     Dosage: 20 UG, QD
  3. FORTEO [Suspect]
     Dosage: 20 UG, QD
  4. FORTEO [Suspect]
     Dosage: 20 UG, QD
     Route: 058
     Dates: start: 20110915, end: 20120716
  5. NASALCROM [Concomitant]
     Indication: ALLERGY PROPHYLAXIS
     Dosage: UNK, QD
  6. LEVOTHYROXINE [Concomitant]
     Indication: BLOOD PRESSURE
     Dosage: UNK UNK, QD
  7. CLONIDINE [Concomitant]
     Indication: BLOOD PRESSURE
     Dosage: UNK, QD
  8. LISINOPRIL [Concomitant]
     Indication: BLOOD PRESSURE
     Dosage: UNK, QD
  9. NORVASC [Concomitant]
     Indication: BLOOD PRESSURE
     Dosage: UNK, QD
  10. NEURONTIN [Concomitant]
     Indication: PAIN
     Dosage: UNK, QD
  11. CELEXA [Concomitant]
     Indication: PAIN
     Dosage: UNK, QD
  12. MIRAPEX [Concomitant]
     Indication: RESTLESS LEGS SYNDROME
     Dosage: UNK, QD
  13. SALAGEN [Concomitant]
     Indication: SJOGREN^S SYNDROME
     Dosage: UNK, QD
  14. AMBIEN [Concomitant]
     Dosage: UNK, EACH EVENING

REACTIONS (12)
  - Skin cancer [Recovered/Resolved]
  - Breast enlargement [Unknown]
  - Injection site erythema [Recovered/Resolved]
  - Limb discomfort [Recovered/Resolved]
  - Contusion [Recovered/Resolved]
  - Erythema [Recovered/Resolved]
  - Muscle disorder [Unknown]
  - Rash macular [Unknown]
  - Asthenia [Recovered/Resolved]
  - Injection site bruising [Not Recovered/Not Resolved]
  - Mass [Unknown]
  - Rash papular [Unknown]
